FAERS Safety Report 23732817 (Version 1)
Quarter: 2024Q2

REPORT INFORMATION
  Report Type: Spontaneous
  Country: PL (occurrence: PL)
  Receive Date: 20240411
  Receipt Date: 20240411
  Transmission Date: 20240715
  Serious: Yes (Hospitalization, Other)
  Sender: FDA-Public Use
  Company Number: PL-MYLANLABS-2024M1019015

PATIENT
  Age: 19 Year
  Sex: Male

DRUGS (9)
  1. OLANZAPINE [Suspect]
     Active Substance: OLANZAPINE
     Indication: Evidence based treatment
     Dosage: UNK
     Route: 065
  2. SERTRALINE [Suspect]
     Active Substance: SERTRALINE HYDROCHLORIDE
     Indication: Evidence based treatment
     Dosage: 200 MILLIGRAM, ONCE A DAY
     Route: 065
  3. ARIPIPRAZOLE [Suspect]
     Active Substance: ARIPIPRAZOLE
     Indication: Autism spectrum disorder
     Dosage: 1 DOSAGE FORM, ONCE A DAY (0.5 DOSAGE FORM, BID (15MG/DAY IN DIVIDED DOSES TWICE A DAY))
     Route: 065
  4. SULPIRIDE [Suspect]
     Active Substance: SULPIRIDE
     Indication: Evidence based treatment
     Dosage: 100 MILLIGRAM, ONCE A DAY
     Route: 065
  5. METHYLPHENIDATE [Suspect]
     Active Substance: METHYLPHENIDATE
     Indication: Evidence based treatment
     Dosage: UNK
     Route: 065
  6. METHYLPHENIDATE [Suspect]
     Active Substance: METHYLPHENIDATE
     Indication: Obsessive-compulsive disorder
  7. CLOMIPRAMINE [Suspect]
     Active Substance: CLOMIPRAMINE
     Indication: Evidence based treatment
     Dosage: UNK
     Route: 065
  8. RISPERIDONE [Suspect]
     Active Substance: RISPERIDONE
     Indication: Product used for unknown indication
     Dosage: UNK
     Route: 065
  9. VALPROIC ACID [Suspect]
     Active Substance: VALPROIC ACID
     Indication: Evidence based treatment
     Dosage: 1000 MILLIGRAM, ONCE A DAY
     Route: 065

REACTIONS (6)
  - Intentional self-injury [Recovered/Resolved]
  - Depressed mood [Recovered/Resolved]
  - Mental impairment [Recovered/Resolved]
  - Drug ineffective [Unknown]
  - Off label use [Unknown]
  - Intentional product misuse [Recovered/Resolved]
